FAERS Safety Report 11023371 (Version 2)
Quarter: 2015Q2

REPORT INFORMATION
  Report Type: Spontaneous
  Country: JP (occurrence: JP)
  Receive Date: 20150413
  Receipt Date: 20150421
  Transmission Date: 20150821
  Serious: Yes (Hospitalization, Other)
  Sender: FDA-Public Use
  Company Number: PHJP2015JP001180

PATIENT
  Age: 81 Year
  Sex: Female

DRUGS (4)
  1. EXELON PATCH [Suspect]
     Active Substance: RIVASTIGMINE
     Indication: DEMENTIA ALZHEIMER^S TYPE
     Dosage: PATCH10(CM2),  QD (18 MG RIVASTIGMINE BASE)
     Route: 062
  2. TRANCOLON [Concomitant]
     Active Substance: MEPENZOLATE BROMIDE
     Indication: PRODUCT USED FOR UNKNOWN INDICATION
     Dosage: UNK
     Route: 065
  3. CEREKINON [Concomitant]
     Active Substance: TRIMEBUTINE
     Indication: PRODUCT USED FOR UNKNOWN INDICATION
     Route: 005
  4. LEXAPRO [Concomitant]
     Active Substance: ESCITALOPRAM OXALATE
     Indication: PRODUCT USED FOR UNKNOWN INDICATION
     Route: 065

REACTIONS (3)
  - Femoral neck fracture [Recovering/Resolving]
  - Product adhesion issue [Unknown]
  - Fall [Unknown]

NARRATIVE: CASE EVENT DATE: 20141101
